FAERS Safety Report 19688824 (Version 2)
Quarter: 2021Q4

REPORT INFORMATION
  Report Type: Spontaneous
  Country: US (occurrence: US)
  Receive Date: 20210811
  Receipt Date: 20211018
  Transmission Date: 20220303
  Serious: No
  Sender: FDA-Public Use
  Company Number: US-SA-SAC20210805000578

PATIENT
  Age: 75 Year
  Sex: Male

DRUGS (2)
  1. AUBAGIO [Suspect]
     Active Substance: TERIFLUNOMIDE
     Indication: Multiple sclerosis
     Dosage: 14 MG, QD
     Route: 048
  2. AVONEX [Concomitant]
     Active Substance: INTERFERON BETA-1A

REACTIONS (7)
  - Discharge [Unknown]
  - Condition aggravated [Unknown]
  - Depression [Unknown]
  - Post-traumatic stress disorder [Unknown]
  - Frequent bowel movements [Unknown]
  - Headache [Unknown]
  - Blood pressure increased [Unknown]

NARRATIVE: CASE EVENT DATE: 20210101
